FAERS Safety Report 7466679-5 (Version None)
Quarter: 2011Q2

REPORT INFORMATION
  Report Type: 
  Country: None (occurrence: None)
  Receive Date: 20110509
  Receipt Date: 20110123
  Transmission Date: 20111010
  Serious: No
  Sender: FDA-Public Use
  Company Number: US-SANOFI-AVENTIS-2011SA005294

PATIENT
  Age: 68 Year
  Sex: Female

DRUGS (5)
  1. APIDRA [Suspect]
     Dosage: DOSAGE: 0-5 UNITS THREE TIMES DAILY, 5 MIN BEFORE MEAL
     Route: 058
     Dates: start: 20110101
  2. HUMALOG [Concomitant]
  3. LANTUS [Suspect]
     Dosage: DOSE:33 UNIT(S)
     Route: 058
     Dates: start: 20110101
  4. SOLOSTAR [Suspect]
     Dates: start: 20110101
  5. SOLOSTAR [Suspect]
     Dates: start: 20110101

REACTIONS (3)
  - BLOOD GLUCOSE DECREASED [None]
  - BLOOD GLUCOSE INCREASED [None]
  - INSOMNIA [None]
